FAERS Safety Report 16347375 (Version 1)
Quarter: 2019Q2

REPORT INFORMATION
  Report Type: Spontaneous
  Country: US (occurrence: US)
  Receive Date: 20190417
  Receipt Date: 20190417
  Transmission Date: 20190711
  Serious: No
  Sender: FDA-Public Use
  Company Number: None

PATIENT

DRUGS (1)
  1. RASUVO [Suspect]
     Active Substance: METHOTREXATE SODIUM
     Dates: start: 201802, end: 201803

REACTIONS (2)
  - Rheumatoid arthritis [None]
  - Drug ineffective [None]

NARRATIVE: CASE EVENT DATE: 20190327
